FAERS Safety Report 24031380 (Version 2)
Quarter: 2024Q3

REPORT INFORMATION
  Report Type: Spontaneous
  Country: US (occurrence: US)
  Receive Date: 20240629
  Receipt Date: 20240705
  Transmission Date: 20241017
  Serious: No
  Sender: AMGEN
  Company Number: US-AMGEN-HZN-2023-010126

PATIENT
  Age: 65 Year
  Sex: Female
  Weight: 99.32 kg

DRUGS (1)
  1. PENNSAID [Suspect]
     Active Substance: DICLOFENAC SODIUM
     Indication: Arthralgia
     Dosage: UNK, 4 PUMPS A DAY
     Route: 061

REACTIONS (2)
  - Product dose omission issue [Unknown]
  - Poor quality product administered [Unknown]
